FAERS Safety Report 25942586 (Version 1)
Quarter: 2025Q4

REPORT INFORMATION
  Report Type: Spontaneous
  Country: US (occurrence: US)
  Receive Date: 20251021
  Receipt Date: 20251021
  Transmission Date: 20260118
  Serious: No
  Sender: AMGEN
  Company Number: US-AMGEN-USASP2025203728

PATIENT
  Age: 72 Year
  Sex: Female

DRUGS (5)
  1. REPATHA [Suspect]
     Active Substance: EVOLOCUMAB
     Indication: Product used for unknown indication
     Dosage: 140 MILLIGRAM, Q2WK
     Route: 065
     Dates: start: 202508
  2. ZEPBOUND [Concomitant]
     Active Substance: TIRZEPATIDE
     Indication: Weight decreased
     Dosage: 2 MILLIGRAM, QWK
     Dates: start: 2025
  3. ZEPBOUND [Concomitant]
     Active Substance: TIRZEPATIDE
     Dosage: 5 MILLIGRAM, QWK
     Dates: start: 2025
  4. ZEPBOUND [Concomitant]
     Active Substance: TIRZEPATIDE
     Dosage: 7 MILLIGRAM, QWK (0.5ML, ONCE A WEEK)
     Dates: start: 2025
  5. Thc + cbn [Concomitant]
     Dosage: UNK
     Route: 065

REACTIONS (6)
  - Illness [Recovering/Resolving]
  - Somnolence [Recovering/Resolving]
  - Speech disorder [Recovering/Resolving]
  - Confusional state [Recovering/Resolving]
  - Intercepted product administration error [Unknown]
  - Product communication issue [Unknown]

NARRATIVE: CASE EVENT DATE: 20251010
